FAERS Safety Report 9386695 (Version 3)
Quarter: 2013Q3

REPORT INFORMATION
  Report Type: Spontaneous
  Country: US (occurrence: US)
  Receive Date: 20130708
  Receipt Date: 20130901
  Transmission Date: 20140515
  Serious: Yes (Hospitalization, Other)
  Sender: FDA-Public Use
  Company Number: US-PFIZER INC-2013198426

PATIENT
  Age: 15 Year
  Sex: Male

DRUGS (11)
  1. PHENYTOIN [Suspect]
     Indication: EPILEPSY
     Dosage: 67.5 MG, 3X/DAY
     Route: 048
     Dates: start: 20121128
  2. PHENYTOIN [Interacting]
     Indication: CONVULSION
     Dosage: 100 MG, 3X/DAY
  3. ONFI [Interacting]
     Indication: EPILEPSY
     Dosage: 5 MG, 2X/DAY
     Dates: start: 20120613
  4. ONFI [Interacting]
     Indication: CONVULSION
     Dosage: 10 MG, 2X/DAY
     Dates: start: 20120829
  5. ONFI [Interacting]
     Dosage: 10 MG, 1X/DAY
  6. ONFI [Interacting]
     Dosage: 15 MG, 1X/DAY
  7. ONFI [Interacting]
     Dosage: 20 MG, 2X/DAY
     Dates: start: 20120904
  8. ONFI [Interacting]
     Dosage: UNK
     Dates: end: 201302
  9. LEVETIRACETAM [Concomitant]
     Indication: CONVULSION
     Dosage: 700 MG, 2X/DAY
  10. BACLOFEN [Concomitant]
     Dosage: UNK
  11. ATIVAN [Concomitant]
     Dosage: UNK

REACTIONS (7)
  - Drug interaction [Recovered/Resolved]
  - Anticonvulsant drug level increased [Recovered/Resolved]
  - Sedation [Recovered/Resolved]
  - Hypoventilation [Recovered/Resolved]
  - Convulsion [Recovered/Resolved]
  - Hypothermia [Unknown]
  - Anticonvulsant drug level increased [Recovered/Resolved]
